FAERS Safety Report 9759208 (Version 1)
Quarter: 2013Q4

REPORT INFORMATION
  Report Type: Spontaneous
  Country: US (occurrence: None)
  Receive Date: 20131216
  Receipt Date: 20131216
  Transmission Date: 20140711
  Serious: Yes (Hospitalization)
  Sender: FDA-Public Use
  Company Number: 163-21880-12110377(0)

PATIENT
  Age: 82 Year
  Sex: Female

DRUGS (1)
  1. REVLIMID ( LENALIDOMIDE) ( 15 MILLIGRAM, CAPSULES) [Suspect]
     Indication: PLASMA CELL MYELOMA
     Dosage: 15 MG, 1 IN 1 D, PO?

REACTIONS (18)
  - Haemoglobin decreased [None]
  - Thrombosis [None]
  - Blood count abnormal [None]
  - Cystitis [None]
  - Kidney infection [None]
  - Pyrexia [None]
  - Renal failure [None]
  - Neuropathy peripheral [None]
  - Swelling [None]
  - Femur fracture [None]
  - Fall [None]
  - Staphylococcal sepsis [None]
  - Pneumonia [None]
  - Asthenia [None]
  - Cholelithiasis [None]
  - Syncope [None]
  - Diarrhoea [None]
  - Bladder prolapse [None]
